FAERS Safety Report 25189810 (Version 1)
Quarter: 2025Q2

REPORT INFORMATION
  Report Type: Spontaneous
  Country: FR (occurrence: FR)
  Receive Date: 20250411
  Receipt Date: 20250411
  Transmission Date: 20250716
  Serious: Yes (Other)
  Sender: TEVA
  Company Number: None

PATIENT
  Age: 77 Year
  Sex: Female

DRUGS (6)
  1. RISPERIDONE [Suspect]
     Active Substance: RISPERIDONE
     Indication: Wrong patient
     Route: 048
     Dates: start: 20250220, end: 20250220
  2. OXAZEPAM [Suspect]
     Active Substance: OXAZEPAM
     Indication: Wrong patient
     Route: 048
     Dates: start: 20250220, end: 20250220
  3. CYAMEMAZINE [Suspect]
     Active Substance: CYAMEMAZINE
     Indication: Wrong patient
     Route: 048
     Dates: start: 20250220, end: 20250220
  4. VALPROIC ACID [Suspect]
     Active Substance: VALPROIC ACID
     Indication: Wrong patient
     Route: 048
     Dates: start: 20250220, end: 20250220
  5. ZOPICLONE [Suspect]
     Active Substance: ZOPICLONE
     Indication: Wrong patient
     Route: 048
     Dates: start: 20250220, end: 20250220
  6. CHLORPROMAZINE [Suspect]
     Active Substance: CHLORPROMAZINE
     Indication: Wrong patient
     Route: 048
     Dates: start: 20250220, end: 20250220

REACTIONS (5)
  - Coma [Recovered/Resolved]
  - Wrong patient [Recovered/Resolved]
  - Blood pressure decreased [Recovered/Resolved]
  - Hypothermia [Recovered/Resolved]
  - Respiratory depression [Recovered/Resolved]

NARRATIVE: CASE EVENT DATE: 20250220
